FAERS Safety Report 5506654-0 (Version None)
Quarter: 2007Q4

REPORT INFORMATION
  Report Type: 
  Country: None (occurrence: None)
  Receive Date: 20071101
  Receipt Date: 20071022
  Transmission Date: 20080405
  Serious: Yes (Life-Threatening, Hospitalization, Other)
  Sender: FDA-Public Use
  Company Number: 2007S1010020

PATIENT
  Age: 74 Year
  Sex: Female
  Weight: 45.3597 kg

DRUGS (8)
  1. FENTANYL TRANSDERMAL SYSTEM [Suspect]
     Indication: BACK PAIN
     Dosage: 50 UG/HR; X1; TRANSDERMAL
     Route: 062
     Dates: start: 20071010, end: 20071011
  2. FENTANYL TRANSDERMAL SYSTEM [Suspect]
     Indication: COMPRESSION FRACTURE
     Dosage: 50 UG/HR; X1; TRANSDERMAL
     Route: 062
     Dates: start: 20071010, end: 20071011
  3. LEXAPRO [Concomitant]
  4. SPIRIVA [Concomitant]
  5. ALBUTEROL [Concomitant]
  6. FLOVENT [Concomitant]
  7. LISINOPRIL [Concomitant]
  8. LIPITOR [Concomitant]

REACTIONS (6)
  - ASTHENIA [None]
  - CONVULSION [None]
  - HALLUCINATION, AUDITORY [None]
  - HALLUCINATION, VISUAL [None]
  - OVERDOSE [None]
  - RESPIRATORY ARREST [None]
